FAERS Safety Report 17975811 (Version 5)
Quarter: 2020Q4

REPORT INFORMATION
  Report Type: Report from Study
  Country: US (occurrence: US)
  Receive Date: 20200702
  Receipt Date: 20201009
  Transmission Date: 20210113
  Serious: Yes (Hospitalization)
  Sender: FDA-Public Use
  Company Number: US-REGENERON PHARMACEUTICALS, INC.-2020-47019

PATIENT

DRUGS (41)
  1. ROSUVASTATIN. [Concomitant]
     Active Substance: ROSUVASTATIN
     Indication: BLOOD CHOLESTEROL INCREASED
     Dosage: 40 MG, 1 IN 1 D
     Route: 048
     Dates: start: 1995
  2. REMIFENTANIL [Concomitant]
     Active Substance: REMIFENTANIL
     Indication: ANAESTHESIA
     Dosage: 2 MG, AS NEEDED DURING SURGERY
     Route: 042
     Dates: start: 20200619, end: 20200619
  3. VELEDIMEX [Suspect]
     Active Substance: VELEDIMEX
     Indication: GLIOBLASTOMA
     Dosage: 20 MG (20 MG,1 IN 1 D)
     Route: 048
     Dates: start: 20200619, end: 20200620
  4. ELIQUIS [Concomitant]
     Active Substance: APIXABAN
     Indication: PULMONARY EMBOLISM
  5. BACTRIM [Concomitant]
     Active Substance: SULFAMETHOXAZOLE\TRIMETHOPRIM
     Indication: PROPHYLAXIS
     Dosage: 800/160 MG, 1 IN 1 D
     Route: 048
     Dates: start: 20191024, end: 20200605
  6. MIRTAZAPINE. [Concomitant]
     Active Substance: MIRTAZAPINE
     Indication: INSOMNIA
     Dosage: 15 MG, 1 IN 1 D
     Route: 048
     Dates: start: 20190920, end: 20200609
  7. LACTOBACILLUS ACIDOPHILUS [Concomitant]
     Active Substance: LACTOBACILLUS ACIDOPHILUS
     Indication: SUPPLEMENTATION THERAPY
     Dosage: 1 DOSAGE FORMS, AS REQUIRED
     Route: 048
     Dates: start: 2017, end: 20200608
  8. BRIMONIDINE [Concomitant]
     Active Substance: BRIMONIDINE TARTRATE
     Indication: GLAUCOMA
     Dosage: 1 APPLICATION (1 DOSAGE FORMS,2 IN 1 D)
     Route: 031
     Dates: start: 20190606
  9. SUCCINYLCHOLINE                    /00057701/ [Concomitant]
     Active Substance: SUCCINYLCHOLINE
     Indication: ANAESTHESIA
     Dosage: 160 MG, AS REQUIRED
     Route: 042
     Dates: start: 20200619, end: 20200619
  10. KETAMINE [Concomitant]
     Active Substance: KETAMINE
     Indication: ANAESTHESIA
     Dosage: 50 MG, AS REQUIRED
     Route: 042
     Dates: start: 20200619, end: 20200619
  11. FLUORESCEIN [Concomitant]
     Active Substance: FLUORESCEIN
     Indication: MALIGNANT GLIOMA
     Dosage: 475 MG, ONCE
     Route: 042
     Dates: start: 20200619, end: 20200619
  12. PROMETHAZINE [Concomitant]
     Active Substance: PROMETHAZINE HYDROCHLORIDE
     Indication: PROPHYLAXIS OF NAUSEA AND VOMITING
     Dosage: 6.25 MG, AS REQUIRED
     Route: 042
     Dates: start: 20200619, end: 20200619
  13. ROSUVASTATIN. [Concomitant]
     Active Substance: ROSUVASTATIN
     Indication: CORONARY ARTERY DISEASE
  14. OXYCONTIN [Concomitant]
     Active Substance: OXYCODONE HYDROCHLORIDE
     Indication: BACK PAIN
     Dosage: 20 MG, AS NEEDED, CAN TAKE 2X PER DAY
     Route: 048
     Dates: start: 20191126, end: 20200605
  15. TYLENOL [Concomitant]
     Active Substance: ACETAMINOPHEN
     Indication: PROPHYLAXIS
     Dosage: 1000 MG, 1 IN 6 HR
     Route: 048
     Dates: start: 20200619, end: 20200628
  16. DEXMEDETOMIDINE. [Concomitant]
     Active Substance: DEXMEDETOMIDINE
     Indication: ANAESTHESIA
     Dosage: 2.59 ML, ONCE
     Route: 042
     Dates: start: 20200619, end: 20200619
  17. MANNITOL. [Concomitant]
     Active Substance: MANNITOL
     Indication: SWELLING
     Dosage: 60 MG, AS NEEDED DURING SURGERY
     Route: 042
     Dates: start: 20200619, end: 20200619
  18. GLYCOPYRROLATE                     /00196201/ [Concomitant]
     Active Substance: GLYCOPYRRONIUM
     Indication: HEART RATE IRREGULAR
     Dosage: 0.2 MG, AS REQUIRED
     Route: 042
     Dates: start: 20200619, end: 20200619
  19. POTASSIUM [Concomitant]
     Active Substance: POTASSIUM
     Indication: BLOOD POTASSIUM DECREASED
     Dosage: 15 MEQ, 1 IN 1 D
     Route: 048
     Dates: start: 20190927
  20. FISH OIL [Concomitant]
     Active Substance: FISH OIL
     Indication: CEREBROVASCULAR ACCIDENT
  21. TYLENOL [Concomitant]
     Active Substance: ACETAMINOPHEN
     Indication: CYTOKINE RELEASE SYNDROME
  22. PROPOFOL. [Concomitant]
     Active Substance: PROPOFOL
     Indication: ANAESTHESIA
     Dosage: 3693 MG, AS REQUIRED
     Route: 042
     Dates: start: 20200619, end: 20200619
  23. CEMIPLIMAB [Suspect]
     Active Substance: CEMIPLIMAB
     Indication: GLIOBLASTOMA
     Dosage: 350 MG (350 MG,1 IN 1 D)
     Route: 042
     Dates: start: 20200612, end: 20200612
  24. AD-RTS-HIL-12 [Suspect]
     Active Substance: INVESTIGATIONAL PRODUCT
     Indication: GLIOBLASTOMA
     Dosage: 0.1 ML (0.1 ML,2.0 X 10 ^11; RIGHT FRONTAL)
     Route: 036
     Dates: start: 20200619, end: 20200619
  25. KEPPRA [Concomitant]
     Active Substance: LEVETIRACETAM
     Indication: SEIZURE
     Dosage: 500 MG, 2 IN 1 D
     Route: 048
     Dates: start: 20190405
  26. MELATONIN [Concomitant]
     Active Substance: MELATONIN
     Indication: INSOMNIA
     Dosage: 10 MG, 1 IN 1 D
     Route: 048
     Dates: start: 2018, end: 20200607
  27. MIRALAX [Concomitant]
     Active Substance: POLYETHYLENE GLYCOL 3350
     Indication: CONSTIPATION
     Dosage: 17 G, 1 IN 1 D
     Route: 048
     Dates: start: 2017
  28. TYLENOL [Concomitant]
     Active Substance: ACETAMINOPHEN
     Indication: PYREXIA
  29. HYDROMORPHONE [Concomitant]
     Active Substance: HYDROMORPHONE
     Indication: ANAESTHESIA
  30. ELIQUIS [Concomitant]
     Active Substance: APIXABAN
     Indication: THROMBOSIS
     Dosage: 5 MG, 2 IN 1 D
     Route: 048
     Dates: start: 2019, end: 20200608
  31. GABAPENTIN. [Concomitant]
     Active Substance: GABAPENTIN
     Indication: NEUROPATHY PERIPHERAL
     Dosage: 800 MG, 1 IN 1 D
     Route: 048
     Dates: start: 20190819
  32. PHENYLEPHRINE [Concomitant]
     Active Substance: PHENYLEPHRINE HYDROCHLORIDE
     Indication: ANAESTHESIA
     Dosage: 4.58 MG, AS REQUIRED
     Route: 042
     Dates: start: 20200619, end: 20200619
  33. LABETALOL [Concomitant]
     Active Substance: LABETALOL\LABETALOL HYDROCHLORIDE
     Indication: HYPERTENSION
     Dosage: 5 MG, AS REQUIRED
     Route: 042
     Dates: start: 20200619
  34. FISH OIL [Concomitant]
     Active Substance: FISH OIL
     Indication: PROPHYLAXIS
     Dosage: 500 MG, 1 IN 1 D
     Route: 048
     Dates: start: 2017, end: 20200608
  35. PHENYLEPHRINE [Concomitant]
     Active Substance: PHENYLEPHRINE HYDROCHLORIDE
     Indication: BLOOD PRESSURE MANAGEMENT
  36. HYDROMORPHONE [Concomitant]
     Active Substance: HYDROMORPHONE
     Indication: PAIN
     Dosage: 1.5 MG, AS REQUIRED
     Route: 042
     Dates: start: 20200619, end: 20200619
  37. CLEVIDIPINE [Concomitant]
     Active Substance: CLEVIDIPINE
     Indication: HYPERTENSION
     Dosage: 25 MG, 1 MG/HR
     Route: 042
     Dates: start: 20200619, end: 20200620
  38. CEFAZOLIN [Concomitant]
     Active Substance: CEFAZOLIN
     Indication: INFECTION PROPHYLAXIS
     Dosage: 2 GM, 3 IN 1 D
     Route: 042
     Dates: start: 20200619, end: 20200620
  39. TYLENOL [Concomitant]
     Active Substance: ACETAMINOPHEN
     Indication: HEADACHE
  40. EPHEDRINE. [Concomitant]
     Active Substance: EPHEDRINE
     Indication: HYPOTENSION
     Dosage: 10 MG, TWICE, AS NEEDED
     Route: 042
     Dates: start: 20200619, end: 20200619
  41. NORMAL SALINE [Concomitant]
     Active Substance: SODIUM CHLORIDE
     Indication: FLUID REPLACEMENT
     Dosage: 1000 ML, 1 IN 1 D
     Route: 042
     Dates: start: 20200619, end: 20200622

REACTIONS (2)
  - Cholecystitis acute [Recovered/Resolved with Sequelae]
  - Encephalopathy [Recovered/Resolved with Sequelae]

NARRATIVE: CASE EVENT DATE: 20200621
